FAERS Safety Report 13193344 (Version 1)
Quarter: 2017Q1

REPORT INFORMATION
  Report Type: Spontaneous
  Country: AR (occurrence: AR)
  Receive Date: 20170207
  Receipt Date: 20170207
  Transmission Date: 20170428
  Serious: Yes (Other)
  Sender: FDA-Public Use
  Company Number: AR-PFIZER INC-2017053260

PATIENT
  Age: 50 Year
  Sex: Female

DRUGS (2)
  1. MEPREDNISONA [Suspect]
     Active Substance: MEPREDNISONE
     Indication: RHEUMATOID ARTHRITIS
     Dosage: 4 MG, DAILY
     Dates: start: 201509
  2. XELJANZ [Suspect]
     Active Substance: TOFACITINIB CITRATE
     Indication: RHEUMATOID ARTHRITIS
     Dosage: 5 MG, 2X/DAY
     Dates: start: 201509

REACTIONS (1)
  - Scleritis [Unknown]

NARRATIVE: CASE EVENT DATE: 201602
